FAERS Safety Report 6680075-X (Version None)
Quarter: 2010Q2

REPORT INFORMATION
  Report Type: 
  Country: None (occurrence: None)
  Receive Date: 20100413
  Receipt Date: 20100409
  Transmission Date: 20101027
  Serious: Yes (Life-Threatening, Hospitalization)
  Sender: FDA-Public Use
  Company Number: GB-NOVOPROD-306875

PATIENT
  Sex: Male

DRUGS (1)
  1. NOVOMIX 30 [Suspect]
     Indication: DRUG USE FOR UNKNOWN INDICATION
     Dosage: 300 IU, SINGLE
     Dates: start: 20100409, end: 20100409

REACTIONS (2)
  - INTENTIONAL OVERDOSE [None]
  - SUICIDE ATTEMPT [None]
